FAERS Safety Report 9924776 (Version 1)
Quarter: 2014Q1

REPORT INFORMATION
  Report Type: Spontaneous
  Country: US (occurrence: None)
  Receive Date: 20140224
  Receipt Date: 20140224
  Transmission Date: 20141002
  Serious: Yes (Disabling)
  Sender: FDA-Public Use
  Company Number: None

PATIENT
  Age: 72 Year
  Sex: Female
  Weight: 77.57 kg

DRUGS (2)
  1. MYRBETRIQ [Suspect]
     Indication: URINARY INCONTINENCE
     Dosage: 1 ONCE DAILY
     Route: 048
     Dates: start: 20140201, end: 20140219
  2. MYRBETRIQ [Suspect]
     Indication: NOCTURIA
     Dosage: 1 ONCE DAILY
     Route: 048
     Dates: start: 20140201, end: 20140219

REACTIONS (5)
  - Muscle spasms [None]
  - Muscle spasms [None]
  - Dry mouth [None]
  - Headache [None]
  - Diarrhoea [None]
